FAERS Safety Report 5325388-9 (Version None)
Quarter: 2007Q2

REPORT INFORMATION
  Report Type: 
  Country: None (occurrence: None)
  Receive Date: 20070509
  Receipt Date: 20070427
  Transmission Date: 20071010
  Serious: Yes (Life-Threatening)
  Sender: FDA-Public Use
  Company Number: 07H-091-0312529-00

PATIENT
  Age: 19 Year
  Sex: Male

DRUGS (6)
  1. MAGNESIUM SULFATE [Suspect]
     Indication: BLOOD MAGNESIUM DECREASED
     Dosage: 20 ML, TWICE, INFUSION
  2. DEXTROSE [Concomitant]
  3. PACKED RED BLOOD CELLS (RED BLOOD CELLS) [Concomitant]
  4. PIPERACILLIN-TAZOBACTAM (PIPERACILLIN SODIUM W/TAZOBACTAM) [Concomitant]
  5. METRONIDAZOLE [Concomitant]
  6. MORPHINE [Concomitant]

REACTIONS (9)
  - ANAPHYLACTIC SHOCK [None]
  - FLUSHING [None]
  - GENERALISED ERYTHEMA [None]
  - HYPOTENSION [None]
  - HYPOXIA [None]
  - PRURITUS [None]
  - TACHYCARDIA [None]
  - TACHYPNOEA [None]
  - URTICARIA [None]
